FAERS Safety Report 5195535-0 (Version None)
Quarter: 2006Q4

REPORT INFORMATION
  Report Type: 
  Country: None (occurrence: None)
  Receive Date: 20061222
  Receipt Date: 20061222
  Transmission Date: 20070319
  Serious: Yes (Hospitalization)
  Sender: FDA-Public Use
  Company Number: None

PATIENT
  Age: 72 Year
  Sex: Male
  Weight: 87 kg

DRUGS (1)
  1. LITHIUM CARBONATE [Suspect]
     Indication: BIPOLAR DISORDER
     Dosage: 600MG/900MG  QAM/QPM  PO
     Route: 048
     Dates: start: 20060831, end: 20060913

REACTIONS (8)
  - COGNITIVE DISORDER [None]
  - CONFUSIONAL STATE [None]
  - COORDINATION ABNORMAL [None]
  - DRUG INTERACTION [None]
  - DRUG LEVEL INCREASED [None]
  - LETHARGY [None]
  - NERVOUSNESS [None]
  - TREMOR [None]
